FAERS Safety Report 7208798-4 (Version None)
Quarter: 2010Q4

REPORT INFORMATION
  Report Type: 
  Country: None (occurrence: None)
  Receive Date: 20101222
  Receipt Date: 20101208
  Transmission Date: 20110411
  Serious: Yes (Hospitalization, Other)
  Sender: FDA-Public Use
  Company Number: 1000017775

PATIENT
  Age: 16 Year
  Sex: Female
  Weight: 70 kg

DRUGS (2)
  1. CITALOPRAM HYDROBROMIDE [Suspect]
     Indication: DEPRESSION
     Dosage: 10 MG (10 MG, 1 IN 1 D), ORAL
     Route: 048
     Dates: start: 20101001, end: 20101102
  2. CONTRACEPTIVE PILL NOS (CONTRACEPTIVE PILL NOS) (CONTRACEPTIVE PILL NO [Concomitant]

REACTIONS (4)
  - OFF LABEL USE [None]
  - OVERDOSE [None]
  - PARANOIA [None]
  - SELF-INJURIOUS IDEATION [None]
